FAERS Safety Report 4409569-4 (Version None)
Quarter: 2004Q3

REPORT INFORMATION
  Report Type: 
  Country: None (occurrence: None)
  Receive Date: 20040726
  Receipt Date: 20040714
  Transmission Date: 20050211
  Serious: Yes (Death)
  Sender: FDA-Public Use
  Company Number: 2004-118510-NL

PATIENT
  Age: 55 Year
  Sex: Male

DRUGS (12)
  1. DANAPAROID SODIUM [Suspect]
     Indication: DISSEMINATED INTRAVASCULAR COAGULATION
     Dosage: 2500 ANT_XA; INTRAVENOUS (NOS)
     Route: 042
     Dates: start: 20040514, end: 20040601
  2. CEFTAZIDIME [Concomitant]
  3. AMIKACIN SULFATE [Concomitant]
  4. FLUCONAZOLE [Concomitant]
  5. FILGRASTIM [Concomitant]
  6. FUROSEMIDE [Concomitant]
  7. ASPARTATE POTASSIUM [Concomitant]
  8. IMMUNOGLOBULIN HUMAN NORMAL [Concomitant]
  9. CARBAZOCHROME SODIUM SULFONATE [Concomitant]
  10. PAZUFLOXACIN [Concomitant]
  11. TOBRAMYCIN SULFATE [Concomitant]
  12. PREDNISOLONE [Concomitant]

REACTIONS (11)
  - ACUTE MYELOID LEUKAEMIA [None]
  - BLOOD UREA INCREASED [None]
  - CONDITION AGGRAVATED [None]
  - DRUG INEFFECTIVE [None]
  - FEBRILE NEUTROPENIA [None]
  - GENERAL PHYSICAL HEALTH DETERIORATION [None]
  - HISTIOCYTOSIS HAEMATOPHAGIC [None]
  - MELAENA [None]
  - PROTEIN TOTAL DECREASED [None]
  - THERAPY NON-RESPONDER [None]
  - VIRAL INFECTION [None]
